FAERS Safety Report 9780661 (Version 1)
Quarter: 2013Q4

REPORT INFORMATION
  Report Type: Spontaneous
  Country: MX (occurrence: MX)
  Receive Date: 20131224
  Receipt Date: 20131224
  Transmission Date: 20140711
  Serious: Yes (Other)
  Sender: FDA-Public Use
  Company Number: MX-009507513-1312MEX009173

PATIENT
  Age: 22 Year
  Sex: Female
  Weight: 56.5 kg

DRUGS (3)
  1. IMPLANON [Suspect]
     Indication: CONTRACEPTION
     Dosage: IMPLANT FOR THREE YEARS
     Route: 059
     Dates: start: 20130622, end: 20131217
  2. FOLIC ACID [Concomitant]
     Indication: PREGNANCY
     Dosage: 1 DF, QD
     Route: 048
     Dates: start: 201310
  3. IRON (UNSPECIFIED) [Concomitant]
     Indication: PREGNANCY
     Dosage: UNK
     Route: 048
     Dates: start: 201310

REACTIONS (4)
  - Abortion threatened [Unknown]
  - Unintended pregnancy [Unknown]
  - Exposure during pregnancy [Unknown]
  - Amenorrhoea [Unknown]
